FAERS Safety Report 5198104-1 (Version None)
Quarter: 2006Q4

REPORT INFORMATION
  Report Type: 
  Country: None (occurrence: None)
  Receive Date: 20061228
  Receipt Date: 20061218
  Transmission Date: 20070319
  Serious: Yes (Life-Threatening, Hospitalization)
  Sender: FDA-Public Use
  Company Number: 2006SP007184

PATIENT
  Age: 55 Year
  Sex: Female
  Weight: 57.1532 kg

DRUGS (5)
  1. TEMODAR [Suspect]
     Indication: ASTROCYTOMA
     Dosage: 120 MG; PO
     Route: 048
     Dates: start: 20061101, end: 20061108
  2. DILANTIN [Suspect]
     Indication: CONVULSION
     Dosage: 300 MG; PO
     Route: 048
     Dates: start: 20061018, end: 20061108
  3. ZOFRAN [Concomitant]
  4. PHENERGAN [Concomitant]
  5. PEPCID [Concomitant]

REACTIONS (1)
  - THERMAL BURN [None]
